FAERS Safety Report 4640751-7 (Version None)
Quarter: 2005Q2

REPORT INFORMATION
  Report Type: 
  Country: None (occurrence: None)
  Receive Date: 20050419
  Receipt Date: 20050322
  Transmission Date: 20051028
  Serious: No
  Sender: FDA-Public Use
  Company Number: 10614

PATIENT
  Age: 18 Year
  Sex: Female

DRUGS (1)
  1. PAMIDRONATE DISODIUM [Suspect]
     Indication: OSTEOGENESIS IMPERFECTA
     Dosage: 3 MG/KG PER_CYCLE IV
     Route: 042

REACTIONS (3)
  - CHILLS [None]
  - LYMPHOPENIA [None]
  - PYREXIA [None]
